FAERS Safety Report 9286890 (Version 1)
Quarter: 2013Q2

REPORT INFORMATION
  Report Type: Spontaneous
  Country: US (occurrence: US)
  Receive Date: 20130513
  Receipt Date: 20130513
  Transmission Date: 20140414
  Serious: No
  Sender: FDA-Public Use
  Company Number: US-PFIZER INC-2013146804

PATIENT
  Age: 66 Year
  Sex: Female
  Weight: 87.08 kg

DRUGS (2)
  1. LYRICA [Suspect]
     Indication: FIBROMYALGIA
     Dosage: 75 MG, 2X/DAY
     Route: 048
     Dates: start: 200704
  2. BENICAR HCT [Concomitant]
     Indication: BLOOD PRESSURE ABNORMAL
     Dosage: 40/25 MG, 1X/DAY
     Route: 048

REACTIONS (4)
  - Drug intolerance [Unknown]
  - Weight increased [Not Recovered/Not Resolved]
  - Abdominal pain upper [Not Recovered/Not Resolved]
  - Drug ineffective [Unknown]
